FAERS Safety Report 5852692-8 (Version None)
Quarter: 2008Q3

REPORT INFORMATION
  Report Type: 
  Country: None (occurrence: None)
  Receive Date: 20080819
  Receipt Date: 20080808
  Transmission Date: 20090109
  Serious: Yes (Congenital Anomaly)
  Sender: FDA-Public Use
  Company Number: 1000000470

PATIENT
  Sex: Female
  Weight: 3.21 kg

DRUGS (4)
  1. CARBAMAZEPINE [Suspect]
     Indication: PARTIAL SEIZURES
     Dosage: 1400 MG
  2. TOPIRAMATE [Suspect]
     Indication: PARTIAL SEIZURES
     Dosage: 100 MG
  3. CLOBAZAM [Suspect]
     Indication: PARTIAL SEIZURES
     Dosage: 10 MG
  4. LEVETIRACETAM [Suspect]
     Indication: PARTIAL SEIZURES
     Dosage: 2500 MILLIGRAM

REACTIONS (2)
  - CONGENITAL HIP DEFORMITY [None]
  - MATERNAL DRUGS AFFECTING FOETUS [None]
